FAERS Safety Report 5991750-4 (Version None)
Quarter: 2008Q4

REPORT INFORMATION
  Report Type: 
  Country: None (occurrence: None)
  Receive Date: 20081211
  Receipt Date: 20081201
  Transmission Date: 20090506
  Serious: Yes (Other)
  Sender: FDA-Public Use
  Company Number: GR-CELGENEUS-066-21880-08120113

PATIENT
  Sex: Male

DRUGS (4)
  1. REVLIMID [Suspect]
     Indication: MULTIPLE MYELOMA
     Route: 048
     Dates: start: 20081022, end: 20081111
  2. REVLIMID [Suspect]
     Route: 048
     Dates: start: 20081119, end: 20081127
  3. REVLIMID [Suspect]
     Route: 048
     Dates: start: 20081128
  4. DEXAMETHASONE [Concomitant]
     Indication: DRUG USE FOR UNKNOWN INDICATION
     Route: 065
     Dates: start: 20081001

REACTIONS (2)
  - NEUROTOXICITY [None]
  - RENAL IMPAIRMENT [None]
